FAERS Safety Report 8502330-0 (Version None)
Quarter: 2012Q3

REPORT INFORMATION
  Report Type: 
  Country: None (occurrence: None)
  Receive Date: 20120711
  Receipt Date: 20120703
  Transmission Date: 20120928
  Serious: Yes (Death, Other)
  Sender: FDA-Public Use
  Company Number: BE-JNJFOC-20120703492

PATIENT
  Age: 55 Year
  Sex: Female

DRUGS (7)
  1. XANAX [Concomitant]
     Indication: FEAR
     Route: 048
  2. TRAMADOL HCL [Suspect]
     Route: 048
     Dates: start: 20120201
  3. ALL OTHER THERAPEUTIC PRODUCTS [Concomitant]
     Indication: DEPRESSION
     Route: 048
  4. TRAMADOL HCL [Suspect]
     Indication: FRACTURE PAIN
     Route: 048
     Dates: start: 20120601, end: 20120601
  5. ACETAMINOPHEN [Concomitant]
     Route: 048
     Dates: start: 20120201
  6. XANAX [Concomitant]
     Indication: PANIC DISORDER
     Route: 048
  7. ACETAMINOPHEN [Concomitant]
     Indication: FRACTURE PAIN
     Route: 048
     Dates: start: 20120601, end: 20120601

REACTIONS (2)
  - COMPLETED SUICIDE [None]
  - OVERDOSE [None]
